FAERS Safety Report 4374595-0 (Version None)
Quarter: 2004Q2

REPORT INFORMATION
  Report Type: 
  Country: None (occurrence: None)
  Receive Date: 20040609
  Receipt Date: 20040512
  Transmission Date: 20050107
  Serious: Yes (Death, Hospitalization)
  Sender: FDA-Public Use
  Company Number: CA-ROCHE-367789

PATIENT
  Age: 73 Year
  Sex: Male
  Weight: 82.3 kg

DRUGS (4)
  1. CAPECITABINE [Suspect]
     Dosage: ACTUAL DOSE 2000MG INTERMITTENT THERAPY OF 14 DAYS TREATMENT AND SEVEN DAYS REST.
     Route: 048
     Dates: start: 20040414, end: 20040510
  2. OXALIPLATIN [Suspect]
     Dosage: ACTUAL DOSE 267MG
     Route: 042
     Dates: start: 20040414, end: 20040510
  3. LIPITOR [Concomitant]
     Dates: start: 20000615
  4. CELEBREX [Concomitant]

REACTIONS (1)
  - ENTEROCOLITIS [None]
